FAERS Safety Report 18604492 (Version 2)
Quarter: 2020Q4

REPORT INFORMATION
  Report Type: Report from Study
  Country: None (occurrence: US)
  Receive Date: 20201211
  Receipt Date: 20201215
  Transmission Date: 20210114
  Serious: Yes (Hospitalization)
  Sender: FDA-Public Use
  Company Number: US-ABBVIE-20K-163-3589042-00

PATIENT
  Sex: Female

DRUGS (3)
  1. HUMIRA [Suspect]
     Active Substance: ADALIMUMAB
     Indication: CROHN^S DISEASE
     Dosage: DAY 1, CF
     Route: 058
     Dates: start: 20200823, end: 20200823
  2. HUMIRA [Suspect]
     Active Substance: ADALIMUMAB
     Indication: CROHN^S DISEASE
     Dosage: CF
     Route: 058
     Dates: start: 20200823
  3. HUMIRA [Suspect]
     Active Substance: ADALIMUMAB
     Dosage: DAY 15
     Route: 058
     Dates: start: 20200907, end: 20200907

REACTIONS (15)
  - Abdominal pain [Not Recovered/Not Resolved]
  - Rib fracture [Recovering/Resolving]
  - Abnormal faeces [Unknown]
  - Rectal haemorrhage [Not Recovered/Not Resolved]
  - Diarrhoea [Not Recovered/Not Resolved]
  - Compression fracture [Recovering/Resolving]
  - Haematochezia [Unknown]
  - Nausea [Not Recovered/Not Resolved]
  - Urinary tract infection [Recovering/Resolving]
  - Diverticulitis [Recovering/Resolving]
  - Fatigue [Not Recovered/Not Resolved]
  - Fear [Unknown]
  - Anxiety [Unknown]
  - Depressed mood [Not Recovered/Not Resolved]
  - Constipation [Not Recovered/Not Resolved]

NARRATIVE: CASE EVENT DATE: 2020
